FAERS Safety Report 4547927-8 (Version None)
Quarter: 2004Q4

REPORT INFORMATION
  Report Type: 
  Country: None (occurrence: None)
  Receive Date: 20041227
  Receipt Date: 20041015
  Transmission Date: 20050328
  Serious: No
  Sender: FDA-Public Use
  Company Number: 04P-163-0277567-00

PATIENT
  Age: 48 Year
  Sex: Female
  Weight: 76.6579 kg

DRUGS (21)
  1. HUMIRA [Suspect]
     Indication: RHEUMATOID ARTHRITIS
     Dosage: 40 MG, 1IN 2 WK, SUBCUTANEOUS
     Route: 058
     Dates: start: 20040101
  2. INSULIN LISPRO [Concomitant]
  3. ISOPHANE INSULIN [Concomitant]
  4. CONJUGATED ESTROGENS [Concomitant]
  5. CLARINEX [Concomitant]
  6. RANITIDINE HYDROCHLORIDE [Concomitant]
  7. CELECOXIB [Concomitant]
  8. VENLAFAXINE HCL [Concomitant]
  9. OXYCODONE HCL [Concomitant]
  10. RISDERONATE SODIUM [Concomitant]
  11. ALLOPURINOL [Concomitant]
  12. POTASSIUM [Concomitant]
  13. HYDROCHLOROTHIAZIDE [Concomitant]
  14. LISINOPRIL [Concomitant]
  15. METOPROLOL [Concomitant]
  16. NITROGLYCERIN [Concomitant]
  17. SULFASALAZINE [Concomitant]
  18. LEFLUNOMIDE [Concomitant]
  19. CALCIUM WITH VITAMIN D [Concomitant]
  20. THERAPEUTIC MULTIVITMAINS [Concomitant]
  21. IBUPROFEN [Concomitant]

REACTIONS (3)
  - DRUG EFFECT DECREASED [None]
  - KIDNEY INFECTION [None]
  - NEPHROLITHIASIS [None]
